FAERS Safety Report 6491584-0 (Version None)
Quarter: 2009Q4

REPORT INFORMATION
  Report Type: 
  Country: None (occurrence: None)
  Receive Date: 20091125
  Receipt Date: 20090306
  Transmission Date: 20100525
  Serious: Yes (Hospitalization)
  Sender: FDA-Public Use
  Company Number: 2009BH003511

PATIENT
  Age: 36 Year
  Sex: Female
  Weight: 55 kg

DRUGS (4)
  1. DIANEAL [Suspect]
     Indication: PERITONEAL DIALYSIS
     Dosage: 7.8 L ; EVERY DAY ; IP
     Route: 033
     Dates: start: 20081215
  2. EPOGEN [Concomitant]
  3. NEURONTIN [Concomitant]
  4. PREDNISONE [Concomitant]

REACTIONS (1)
  - PERITONITIS BACTERIAL [None]
